FAERS Safety Report 6010894-4 (Version None)
Quarter: 2008Q4

REPORT INFORMATION
  Report Type: 
  Country: None (occurrence: None)
  Receive Date: 20081217
  Receipt Date: 20081217
  Transmission Date: 20090506
  Serious: Yes (Life-Threatening, Hospitalization)
  Sender: FDA-Public Use
  Company Number: None

PATIENT
  Age: 61 Year
  Sex: Male
  Weight: 124.7392 kg

DRUGS (2)
  1. MORPHINE SULFATE IR 15MG ETHEX [Suspect]
     Indication: PAIN
     Dosage: 1 TABLET 3X/DAY AS NEED PO, ONE PILL ON FIRST DAY USED
     Route: 048
  2. MORPHINE SULFATE IR 15MG ETHEX [Suspect]
     Indication: SPINAL FRACTURE
     Dosage: 1 TABLET 3X/DAY AS NEED PO, ONE PILL ON FIRST DAY USED
     Route: 048

REACTIONS (3)
  - ANAPHYLACTIC REACTION [None]
  - HYPERSENSITIVITY [None]
  - PRODUCT QUALITY ISSUE [None]
